FAERS Safety Report 10265387 (Version 3)
Quarter: 2014Q4

REPORT INFORMATION
  Report Type: Spontaneous
  Country: IT (occurrence: None)
  Receive Date: 20140624
  Receipt Date: 20141112
  Transmission Date: 20150528
  Serious: Yes (Hospitalization)
  Sender: FDA-Public Use
  Company Number: NL01PV14.36380

PATIENT
  Age: 46 Year
  Sex: Female

DRUGS (3)
  1. ZOLPIDEM [Suspect]
     Active Substance: ZOLPIDEM\ZOLPIDEM TARTRATE
     Indication: INTENTIONAL SELF-INJURY
     Dosage: 10 DF
     Route: 048
     Dates: start: 20140515, end: 20140515
  2. CITALOPRAM (CITALOPRAM) [Suspect]
     Active Substance: CITALOPRAM HYDROBROMIDE
     Indication: DERMATILLOMANIA
     Dosage: 20 DF
     Route: 048
     Dates: start: 20140515, end: 20140515
  3. CITALOPRAM (CITALOPRAM) [Suspect]
     Active Substance: CITALOPRAM HYDROBROMIDE
     Indication: INTENTIONAL SELF-INJURY
     Dosage: 20 DF
     Route: 048
     Dates: start: 20140515, end: 20140515

REACTIONS (5)
  - Alcohol use [None]
  - Intentional self-injury [None]
  - Drug abuse [None]
  - Sopor [None]
  - White blood cell count increased [None]

NARRATIVE: CASE EVENT DATE: 20140515
